FAERS Safety Report 5094867-4 (Version None)
Quarter: 2006Q3

REPORT INFORMATION
  Report Type: 
  Country: None (occurrence: None)
  Receive Date: 20060901
  Receipt Date: 20060509
  Transmission Date: 20061208
  Serious: Yes (Hospitalization)
  Sender: FDA-Public Use
  Company Number: PHBS2006AT06963

PATIENT
  Age: 60 Year
  Sex: Female

DRUGS (13)
  1. ZOMETA [Suspect]
     Indication: BREAST CANCER
     Dosage: UNK, UNK
     Route: 065
  2. SIBELIUM [Concomitant]
     Dosage: 10 MG, 0 - 0 - 0 - 1
     Route: 065
  3. TEBOFORTAN [Concomitant]
     Route: 065
  4. ZANTAC [Concomitant]
     Dosage: 150 MG, 1 - 0 - 0
     Route: 065
  5. ACECOMB [Concomitant]
     Dosage: 1 -0 -0
     Route: 065
  6. ACEMIN [Concomitant]
     Dosage: 10 MG, 0 - 0 - 1
     Route: 065
  7. GLUCOPHAGE [Concomitant]
     Dosage: 850 MG, 0 - 1 - 1
     Route: 065
  8. AMARYL [Concomitant]
     Dosage: 3 MG, 1 - 0 - 0
     Route: 065
  9. SEROPRAM [Concomitant]
     Dosage: 20 MG, 1 - 0 - 0
     Route: 065
  10. THYREX [Concomitant]
     Dosage: 0.1 MG, 1 - 0 - 0
     Route: 065
  11. BEZALIP - SLOW RELEASE [Concomitant]
     Dosage: 400 MG, 0 - 0 - 1
     Route: 065
  12. TOVOLON [Concomitant]
     Dosage: 30 MG, 0 - 0 - 0 -1
     Route: 065
  13. LEXOTANIL [Concomitant]
     Dosage: 3 MG, 0.5 - 0 - 0.5
     Route: 065

REACTIONS (5)
  - ABSCESS [None]
  - BONE TRIMMING [None]
  - OSTEOMYELITIS [None]
  - SEQUESTRECTOMY [None]
  - WOUND DEHISCENCE [None]
